FAERS Safety Report 5048916-X (Version None)
Quarter: 2006Q3

REPORT INFORMATION
  Report Type: 
  Country: None (occurrence: None)
  Receive Date: 20060712
  Receipt Date: 20050815
  Transmission Date: 20061208
  Serious: No
  Sender: FDA-Public Use
  Company Number: US-GLAXOSMITHKLINE-A0570264A

PATIENT
  Age: 76 Year
  Sex: Female

DRUGS (3)
  1. IMITREX [Suspect]
     Indication: MIGRAINE
     Dosage: 100MG AS REQUIRED
     Route: 048
     Dates: start: 19960101
  2. THYROID TAB [Concomitant]
  3. FIORICET [Concomitant]

REACTIONS (3)
  - HEADACHE [None]
  - MALAISE [None]
  - SENSATION OF FOREIGN BODY [None]
